FAERS Safety Report 11796146 (Version 1)
Quarter: 2015Q4

REPORT INFORMATION
  Report Type: Other
  Country: JP (occurrence: JP)
  Receive Date: 20151203
  Receipt Date: 20151203
  Transmission Date: 20160305
  Serious: Yes (Other)
  Sender: FDA-Public Use
  Company Number: JP-HETERO LABS LTD-1044984

PATIENT
  Age: 9 Year
  Sex: Female

DRUGS (4)
  1. CLOBAZAM [Concomitant]
     Active Substance: CLOBAZAM
  2. SODIUM VALPROATE [Concomitant]
     Active Substance: VALPROATE SODIUM
  3. LEVETIRACETAM. [Suspect]
     Active Substance: LEVETIRACETAM
     Indication: EPILEPSY
  4. BENZODIAZEPINES [Concomitant]
     Active Substance: BENZODIAZEPINE

REACTIONS (2)
  - Anger [Recovered/Resolved]
  - Aggression [Recovered/Resolved]
